FAERS Safety Report 5327446-1 (Version None)
Quarter: 2007Q2

REPORT INFORMATION
  Report Type: 
  Country: None (occurrence: None)
  Receive Date: 20070514
  Receipt Date: 20070514
  Transmission Date: 20071010
  Serious: Yes (Life-Threatening, Hospitalization)
  Sender: FDA-Public Use
  Company Number: None

PATIENT
  Sex: Female
  Weight: 61.6892 kg

DRUGS (7)
  1. PLAVIX [Suspect]
     Indication: ANEURYSM REPAIR
     Dates: start: 20061130, end: 20070427
  2. PLAVIX [Suspect]
     Indication: STENT PLACEMENT
     Dates: start: 20061130, end: 20070427
  3. METHOTREXATE [Concomitant]
  4. VYTORIN [Concomitant]
  5. FOLIC ACID [Concomitant]
  6. AVAPRO [Concomitant]
  7. BONIVA [Concomitant]

REACTIONS (1)
  - HOSPITALISATION [None]
